FAERS Safety Report 7198060-0 (Version None)
Quarter: 2010Q4

REPORT INFORMATION
  Report Type: 
  Country: None (occurrence: None)
  Receive Date: 20101227
  Receipt Date: 20101219
  Transmission Date: 20110411
  Serious: Yes (Other)
  Sender: FDA-Public Use
  Company Number: US-ROCHE-749845

PATIENT
  Sex: Female

DRUGS (5)
  1. PEGASYS [Suspect]
     Indication: HEPATITIS C
     Dosage: RECENTLY
     Route: 065
  2. PEGASYS [Suspect]
     Route: 065
     Dates: start: 20101125
  3. COPEGUS [Suspect]
     Indication: HEPATITIS C
     Route: 065
  4. COPEGUS [Suspect]
     Dosage: FORM:PILL
     Route: 065
     Dates: start: 20101125
  5. ZANTAC [Concomitant]

REACTIONS (8)
  - ALOPECIA [None]
  - DEPRESSION [None]
  - EPISTAXIS [None]
  - HYPOPHAGIA [None]
  - NAUSEA [None]
  - PANCREATITIS [None]
  - PYREXIA [None]
  - VOMITING [None]
